FAERS Safety Report 16984541 (Version 1)
Quarter: 2019Q4

REPORT INFORMATION
  Report Type: Spontaneous
  Country: US (occurrence: US)
  Receive Date: 20190917
  Receipt Date: 20190917
  Transmission Date: 20200122
  Serious: Yes (Hospitalization)
  Sender: FDA-Public Use
  Company Number: None

PATIENT
  Age: 65 Year
  Sex: Male

DRUGS (1)
  1. TOBRAMYCIN 300MG/5ML 20ML NEB [Suspect]
     Active Substance: TOBRAMYCIN
     Indication: PNEUMONIA PSEUDOMONAL
     Dosage: ?          OTHER DOSE:1 VIAL;?
     Route: 048
     Dates: start: 20160316, end: 20180807

REACTIONS (2)
  - Cardiac failure acute [None]
  - Acute respiratory failure [None]
